FAERS Safety Report 8796591 (Version 1)
Quarter: 2012Q4

REPORT INFORMATION
  Report Type: 
  Country: ZA (occurrence: ZA)
  Receive Date: 20120919
  Receipt Date: 20120919
  Transmission Date: 20130627
  Serious: Yes (Hospitalization)
  Sender: FDA-Public Use
  Company Number: ZA-BMSGILMSD-2012-0061189

PATIENT
  Age: 39 Year
  Sex: Male

DRUGS (1)
  1. ATRIPLA [Suspect]
     Indication: HIV INFECTION
     Dosage: 1 DF, QD
     Route: 048
     Dates: end: 2012

REACTIONS (2)
  - Urinary tract infection [Recovered/Resolved]
  - Renal failure [Recovered/Resolved]
